FAERS Safety Report 14544458 (Version 1)
Quarter: 2018Q1

REPORT INFORMATION
  Report Type: Spontaneous
  Country: US (occurrence: US)
  Receive Date: 20180217
  Receipt Date: 20180217
  Transmission Date: 20180509
  Serious: No
  Sender: FDA-Public Use
  Company Number: US-TOLMAR, INC.-TOLG20180048

PATIENT
  Sex: Male

DRUGS (1)
  1. CLOBETASOL PROPIONATE. [Suspect]
     Active Substance: CLOBETASOL PROPIONATE
     Indication: PSORIASIS
     Dosage: A FEW DROPS TO AFFECTED AREA OF SCALP
     Route: 061

REACTIONS (2)
  - Drug effect delayed [Not Recovered/Not Resolved]
  - Application site pain [Not Recovered/Not Resolved]
